FAERS Safety Report 8243755-0 (Version None)
Quarter: 2012Q1

REPORT INFORMATION
  Report Type: 
  Country: None (occurrence: None)
  Receive Date: 20120329
  Receipt Date: 20110720
  Transmission Date: 20120608
  Serious: No
  Sender: FDA-Public Use
  Company Number: US-MYLANLABS-2011S1015298

PATIENT
  Age: 58 Year
  Sex: Male

DRUGS (3)
  1. EPINEPHRINE [Suspect]
     Indication: DENTAL CARE
  2. EMSAM [Suspect]
     Route: 062
  3. LIDOCAINE [Suspect]
     Indication: DENTAL CARE

REACTIONS (1)
  - LETHARGY [None]
